FAERS Safety Report 8135823-9 (Version None)
Quarter: 2012Q1

REPORT INFORMATION
  Report Type: 
  Country: None (occurrence: None)
  Receive Date: 20120214
  Receipt Date: 20110517
  Transmission Date: 20120608
  Serious: Yes (Hospitalization)
  Sender: FDA-Public Use
  Company Number: US-GLAXOSMITHKLINE-A0928839A

PATIENT
  Age: 52 Year
  Sex: Male

DRUGS (2)
  1. AVANDAMET [Suspect]
     Indication: DIABETES MELLITUS
     Route: 048
     Dates: start: 20040101, end: 20100704
  2. AVANDIA [Suspect]
     Indication: DIABETES MELLITUS
     Route: 048
     Dates: start: 20090708, end: 20090807

REACTIONS (3)
  - CARDIAC FAILURE CONGESTIVE [None]
  - MYOCARDIAL INFARCTION [None]
  - CARDIOMYOPATHY [None]
